FAERS Safety Report 16182682 (Version 1)
Quarter: 2019Q2

REPORT INFORMATION
  Report Type: Spontaneous
  Country: US (occurrence: US)
  Receive Date: 20190411
  Receipt Date: 20190411
  Transmission Date: 20190711
  Serious: Yes (Hospitalization, Other)
  Sender: FDA-Public Use
  Company Number: US-HIKMA PHARMACEUTICALS USA INC.-US-H14001-19-02103

PATIENT
  Age: 46 Year
  Sex: Female

DRUGS (6)
  1. PREDNISONE. [Concomitant]
     Active Substance: PREDNISONE
     Indication: PEMPHIGOID
     Route: 065
     Dates: start: 2016
  2. MYCOPHENOLATE MOFETIL. [Interacting]
     Active Substance: MYCOPHENOLATE MOFETIL
     Route: 065
  3. MYCOPHENOLATE MOFETIL. [Suspect]
     Active Substance: MYCOPHENOLATE MOFETIL
     Indication: PEMPHIGOID
     Route: 065
     Dates: start: 2016, end: 2017
  4. RITUXIMAB. [Interacting]
     Active Substance: RITUXIMAB
     Indication: PEMPHIGOID
     Route: 065
     Dates: start: 2017
  5. NIACINAMIDE [Concomitant]
     Active Substance: NIACINAMIDE
     Indication: PEMPHIGOID
     Route: 065
     Dates: start: 2016
  6. DOXYCYCLINE. [Concomitant]
     Active Substance: DOXYCYCLINE
     Indication: PEMPHIGOID
     Route: 065
     Dates: start: 2016

REACTIONS (4)
  - Neutropenia [Recovered/Resolved]
  - Drug interaction [Recovered/Resolved]
  - Febrile neutropenia [Recovered/Resolved]
  - Off label use [Unknown]

NARRATIVE: CASE EVENT DATE: 2017
